FAERS Safety Report 23157831 (Version 3)
Quarter: 2023Q4

REPORT INFORMATION
  Report Type: Report from Study
  Country: US (occurrence: US)
  Receive Date: 20231108
  Receipt Date: 20231211
  Transmission Date: 20240109
  Serious: No
  Sender: FDA-Public Use
  Company Number: US-ALXN-202310USA000144US

PATIENT
  Sex: Male

DRUGS (1)
  1. STRENSIQ [Suspect]
     Active Substance: ASFOTASE ALFA
     Indication: Hypophosphatasia
     Dosage: 129 MILLIGRAM, TIW
     Route: 065
     Dates: start: 20231018

REACTIONS (4)
  - Arthralgia [Unknown]
  - Injection site reaction [Unknown]
  - Injection site erythema [Recovering/Resolving]
  - Injection site pain [Unknown]
